FAERS Safety Report 9285550 (Version 4)
Quarter: 2014Q2

REPORT INFORMATION
  Report Type: Report from Study
  Country: JP (occurrence: JP)
  Receive Date: 20130513
  Receipt Date: 20140423
  Transmission Date: 20141212
  Serious: Yes (Death)
  Sender: FDA-Public Use
  Company Number: JP-ROCHE-1223700

PATIENT
  Age: 79 Year
  Sex: Female

DRUGS (6)
  1. ALTEPLASE [Suspect]
     Indication: THROMBOTIC CEREBRAL INFARCTION
     Route: 042
     Dates: start: 20130426, end: 20130426
  2. EDARAVONE [Suspect]
     Indication: THROMBOTIC CEREBRAL INFARCTION
     Route: 041
     Dates: start: 20130426, end: 20130428
  3. RADICUT [Concomitant]
     Dosage: RADICUT BAG
     Route: 042
     Dates: start: 20130426, end: 20130428
  4. GLYCEOL [Concomitant]
     Route: 065
     Dates: start: 20130426, end: 20130428
  5. CILOSTAZOL [Concomitant]
  6. CATABON [Concomitant]
     Route: 051
     Dates: start: 20130427, end: 20130427

REACTIONS (2)
  - Aortic dissection [Fatal]
  - Brain oedema [Fatal]
